FAERS Safety Report 14047339 (Version 3)
Quarter: 2018Q1

REPORT INFORMATION
  Report Type: Spontaneous
  Country: US (occurrence: US)
  Receive Date: 20171005
  Receipt Date: 20180129
  Transmission Date: 20180508
  Serious: No
  Sender: FDA-Public Use
  Company Number: US-LUNDBECK-DKLU2038007

PATIENT
  Age: 85 Year
  Sex: Male

DRUGS (7)
  1. NORTHERA [Suspect]
     Active Substance: DROXIDOPA
     Route: 065
  2. NORTHERA [Suspect]
     Active Substance: DROXIDOPA
     Indication: ORTHOSTATIC HYPOTENSION
     Dosage: SCHEDULE C, TITRATION COMPLETE
     Route: 048
     Dates: start: 20170930, end: 20171001
  3. NORTHERA [Suspect]
     Active Substance: DROXIDOPA
     Route: 048
  4. NORTHERA [Suspect]
     Active Substance: DROXIDOPA
     Route: 048
     Dates: start: 20171002, end: 20171003
  5. DIGOXIN. [Suspect]
     Active Substance: DIGOXIN
     Indication: ATRIAL FIBRILLATION
     Route: 065
  6. NORTHERA [Suspect]
     Active Substance: DROXIDOPA
     Indication: PARKINSON^S DISEASE
     Dosage: SCHEDULE C, TITRATION COMPLETE
     Route: 048
     Dates: start: 20170922, end: 20170926
  7. DIGOXIN. [Suspect]
     Active Substance: DIGOXIN
     Indication: HEART RATE DECREASED

REACTIONS (6)
  - Tinnitus [Unknown]
  - Inappropriate schedule of drug administration [Unknown]
  - Blood pressure decreased [Not Recovered/Not Resolved]
  - Adverse drug reaction [Unknown]
  - Dizziness [Unknown]
  - Visual impairment [Unknown]

NARRATIVE: CASE EVENT DATE: 201709
